FAERS Safety Report 7067287-0 (Version None)
Quarter: 2010Q4

REPORT INFORMATION
  Report Type: 
  Country: None (occurrence: None)
  Receive Date: 20101022
  Receipt Date: 20101022
  Transmission Date: 20110411
  Serious: No
  Sender: FDA-Public Use
  Company Number: None

PATIENT
  Age: 61 Year
  Sex: Female

DRUGS (2)
  1. XELODA [Suspect]
     Indication: BREAST CANCER
  2. XELODA [Suspect]
     Indication: COLORECTAL CANCER

REACTIONS (1)
  - DIARRHOEA [None]
